FAERS Safety Report 12587566 (Version 1)
Quarter: 2016Q3

REPORT INFORMATION
  Report Type: Spontaneous
  Country: US (occurrence: US)
  Receive Date: 20160725
  Receipt Date: 20160725
  Transmission Date: 20161109
  Serious: No
  Sender: FDA-Public Use
  Company Number: US-MYLANLABS-2015M1022960

PATIENT
  Sex: Male

DRUGS (1)
  1. HALOPERIDOL TABLETS, USP [Suspect]
     Active Substance: HALOPERIDOL
     Dosage: 5 MG, QD
     Route: 048
     Dates: start: 20150629

REACTIONS (1)
  - Drug ineffective [Not Recovered/Not Resolved]

NARRATIVE: CASE EVENT DATE: 20150701
